FAERS Safety Report 4979715-2 (Version None)
Quarter: 2006Q2

REPORT INFORMATION
  Report Type: 
  Country: None (occurrence: None)
  Receive Date: 20060418
  Receipt Date: 20060329
  Transmission Date: 20061013
  Serious: Yes (Hospitalization)
  Sender: FDA-Public Use
  Company Number: 6021711

PATIENT
  Age: 89 Year
  Sex: Female

DRUGS (1)
  1. BISOPROLOL FUMARATE [Suspect]

REACTIONS (6)
  - BRADYCARDIA [None]
  - DRUG TOXICITY [None]
  - HYPOTENSION [None]
  - LOSS OF CONSCIOUSNESS [None]
  - OLIGURIA [None]
  - SUICIDE ATTEMPT [None]
